FAERS Safety Report 10219504 (Version 2)
Quarter: 2014Q2

REPORT INFORMATION
  Report Type: Spontaneous
  Country: US (occurrence: US)
  Receive Date: 20140605
  Receipt Date: 20140605
  Transmission Date: 20141212
  Serious: Yes (Hospitalization)
  Sender: FDA-Public Use
  Company Number: US-GLAXOSMITHKLINE-A0862398A

PATIENT
  Age: 46 Year
  Sex: Female
  Weight: 107.3 kg

DRUGS (1)
  1. AVANDIA [Suspect]
     Indication: DIABETES MELLITUS
     Route: 048
     Dates: start: 200411, end: 200807

REACTIONS (2)
  - Angina pectoris [Not Recovered/Not Resolved]
  - Myocardial infarction [Unknown]
